FAERS Safety Report 26219381 (Version 1)
Quarter: 2025Q4

REPORT INFORMATION
  Report Type: Spontaneous
  Country: US (occurrence: US)
  Receive Date: 20251231
  Receipt Date: 20251231
  Transmission Date: 20260118
  Serious: No
  Sender: TEVA
  Company Number: US-TEVA-VS-3407139

PATIENT
  Age: 52 Year

DRUGS (1)
  1. COPAXONE [Suspect]
     Active Substance: GLATIRAMER ACETATE
     Indication: Product used for unknown indication
     Dosage: FORM STRENGTH: UNKNOWN
     Route: 065

REACTIONS (5)
  - Injection site reaction [Unknown]
  - Drug intolerance [Unknown]
  - Needle fatigue [Unknown]
  - Swelling [Unknown]
  - Alopecia [Unknown]
